FAERS Safety Report 22160860 (Version 1)
Quarter: 2023Q1

REPORT INFORMATION
  Report Type: Spontaneous
  Country: US (occurrence: None)
  Receive Date: 20230330
  Receipt Date: 20230330
  Transmission Date: 20230418
  Serious: No
  Sender: FDA-Public Use
  Company Number: None

PATIENT
  Age: 65 Year
  Sex: Female

DRUGS (1)
  1. ENBREL [Suspect]
     Active Substance: ETANERCEPT
     Indication: Rheumatoid arthritis
     Dosage: ?50MB OTHER SUBCUTANEOUS
     Route: 058
     Dates: start: 20211228

REACTIONS (2)
  - Hernia [None]
  - Therapy interrupted [None]

NARRATIVE: CASE EVENT DATE: 20230327
